FAERS Safety Report 5282242-9 (Version None)
Quarter: 2007Q1

REPORT INFORMATION
  Report Type: 
  Country: None (occurrence: None)
  Receive Date: 20070330
  Receipt Date: 20070320
  Transmission Date: 20070707
  Serious: Yes (Death, Hospitalization)
  Sender: FDA-Public Use
  Company Number: EG-PFIZER INC-2007022472

PATIENT
  Age: 73 Year
  Sex: Male

DRUGS (8)
  1. NORVASC [Suspect]
     Indication: HYPERTENSION
     Route: 048
  2. ALDOMET [Concomitant]
     Indication: HYPERTENSION
     Route: 048
  3. LASIX [Concomitant]
     Indication: HYPERTENSION
     Route: 048
  4. ISOPTIN [Concomitant]
     Indication: MYOCARDIAL ISCHAEMIA
     Route: 048
  5. MIFLONIDE [Concomitant]
     Route: 055
  6. FORADIL [Concomitant]
     Route: 055
  7. NOVONORM [Concomitant]
     Indication: DIABETES MELLITUS
     Route: 058
  8. CIPRALEX [Concomitant]
     Indication: DEPRESSION
     Route: 048

REACTIONS (4)
  - ASTHMA [None]
  - HYPERTENSION [None]
  - PULMONARY OEDEMA [None]
  - SUDDEN DEATH [None]
